FAERS Safety Report 13796301 (Version 1)
Quarter: 2017Q3

REPORT INFORMATION
  Report Type: Spontaneous
  Country: US (occurrence: US)
  Receive Date: 20170726
  Receipt Date: 20170726
  Transmission Date: 20171127
  Serious: Yes (Hospitalization, Other)
  Sender: FDA-Public Use
  Company Number: US-PRESTIGE BRANDS -2023826

PATIENT
  Age: 68 Year
  Sex: Male

DRUGS (3)
  1. TIKOSYN [Suspect]
     Active Substance: DOFETILIDE
  2. LENVIMA [Suspect]
     Active Substance: LENVATINIB
  3. ECOTRIN [Suspect]
     Active Substance: ASPIRIN

REACTIONS (3)
  - Accidental overdose [Recovered/Resolved]
  - Feeling abnormal [Recovered/Resolved]
  - Hospitalisation [Recovered/Resolved]
